FAERS Safety Report 7615767-9 (Version None)
Quarter: 2011Q3

REPORT INFORMATION
  Report Type: 
  Country: None (occurrence: None)
  Receive Date: 20110711
  Receipt Date: 20110628
  Transmission Date: 20111222
  Serious: Yes (Hospitalization)
  Sender: FDA-Public Use
  Company Number: 1000021938

PATIENT
  Age: 86 Year
  Sex: Female

DRUGS (8)
  1. CIPRALAN [Suspect]
     Indication: ARRHYTHMIA
     Dosage: ORAL
     Route: 048
  2. ESIDREX (HYDROCHLOROTHIAZIDE) (HYDROCHLOROTHIAZIDE) [Concomitant]
  3. NORDAZ (NORDAZEPAM) (TABLETS) [Suspect]
     Dosage: ORAL
     Route: 048
  4. ASPIRIN [Suspect]
     Dosage: ORAL
     Route: 048
  5. ATORVASTATIN CALCIUM [Suspect]
     Indication: DYSLIPIDAEMIA
     Dosage: ORAL
     Route: 048
     Dates: end: 20100701
  6. NEBIVOLOL HCL [Suspect]
     Indication: HYPERTENSION
     Dosage: ORAL
     Route: 048
  7. IRBESARTAN [Suspect]
     Dosage: ORAL
     Route: 048
  8. LEVOTHYROXINE SODIUM [Concomitant]

REACTIONS (5)
  - RHABDOMYOLYSIS [None]
  - AUTOIMMUNE DISORDER [None]
  - INTENTIONAL DRUG MISUSE [None]
  - MYOPATHY TOXIC [None]
  - TOXICITY TO VARIOUS AGENTS [None]
